FAERS Safety Report 13266564 (Version 3)
Quarter: 2017Q4

REPORT INFORMATION
  Report Type: Report from Study
  Country: IL (occurrence: IL)
  Receive Date: 20170223
  Receipt Date: 20171227
  Transmission Date: 20180320
  Serious: Yes (Death, Other)
  Sender: FDA-Public Use
  Company Number: IL-ROCHE-1894696

PATIENT

DRUGS (2)
  1. MYCOPHENOLATE MOFETIL. [Suspect]
     Active Substance: MYCOPHENOLATE MOFETIL
     Indication: PROPHYLAXIS AGAINST GRAFT VERSUS HOST DISEASE
     Route: 048
  2. CYCLOSPORINE A [Suspect]
     Active Substance: CYCLOSPORINE
     Indication: PROPHYLAXIS AGAINST GRAFT VERSUS HOST DISEASE
     Route: 042

REACTIONS (8)
  - Acute graft versus host disease [Fatal]
  - Multiple organ dysfunction syndrome [Fatal]
  - Infection [Fatal]
  - Gastrointestinal disorder [Unknown]
  - Completed suicide [Fatal]
  - Transplant failure [Fatal]
  - Nephropathy toxic [Fatal]
  - Venoocclusive disease [Fatal]
